FAERS Safety Report 10191518 (Version 1)
Quarter: 2014Q2

REPORT INFORMATION
  Report Type: Spontaneous
  Country: CH (occurrence: CH)
  Receive Date: 20140523
  Receipt Date: 20140523
  Transmission Date: 20141212
  Serious: Yes (Hospitalization)
  Sender: FDA-Public Use
  Company Number: CH-TEVA-481924ISR

PATIENT
  Age: 62 Year
  Sex: Female
  Weight: 76 kg

DRUGS (7)
  1. IRFEN 600MG [Suspect]
     Indication: LUMBAR RADICULOPATHY
     Dosage: LONG TERM, SINCE JAN-2014 IRREGULAR INTAKE
     Route: 048
     Dates: end: 2014
  2. PANTOZOL [Interacting]
     Dosage: 40 MILLIGRAM DAILY;
     Route: 048
     Dates: end: 2014
  3. CRESTOR [Concomitant]
     Dosage: 20 MILLIGRAM DAILY;
     Route: 048
     Dates: end: 201404
  4. METFIN [Concomitant]
     Dosage: 850 MILLIGRAM DAILY;
     Route: 048
     Dates: end: 201404
  5. COTENOLOL NEO [Concomitant]
     Route: 048
     Dates: end: 201404
  6. TRANSIPEG FORTE [Concomitant]
     Dosage: CONTINUING
     Route: 048
  7. SERESTA [Concomitant]
     Dosage: CONTINUING
     Route: 048

REACTIONS (9)
  - Tubulointerstitial nephritis [Recovering/Resolving]
  - Proteinuria [Recovering/Resolving]
  - Fatigue [Unknown]
  - Constipation [Unknown]
  - Decreased appetite [Unknown]
  - Renal pain [Unknown]
  - Drug interaction [Recovered/Resolved]
  - Blood glucose increased [None]
  - Renal cyst [None]
